FAERS Safety Report 7467349-X (Version None)
Quarter: 2011Q2

REPORT INFORMATION
  Report Type: 
  Country: None (occurrence: None)
  Receive Date: 20110509
  Receipt Date: 20101213
  Transmission Date: 20111010
  Serious: No
  Sender: FDA-Public Use
  Company Number: US-ALEXION-A201001595

PATIENT
  Sex: Female
  Weight: 74.83 kg

DRUGS (15)
  1. MILNACIPRAN HYDROCHLORIDE [Concomitant]
     Dosage: 50 MG, UNK
  2. SOLIRIS [Suspect]
     Dosage: 900 MG, Q2W
     Route: 042
     Dates: start: 20100817, end: 20101026
  3. SOLIRIS [Suspect]
     Dosage: 1200 MG, SINGLE
     Route: 042
     Dates: start: 20101109, end: 20101109
  4. PROTONIX [Concomitant]
     Dosage: 40 MG, UNK
  5. LIDOCAINE                          /00033402/ [Concomitant]
     Dosage: UNK
     Route: 061
  6. SOLIRIS [Suspect]
     Indication: PAROXYSMAL NOCTURNAL HAEMOGLOBINURIA
     Dosage: 600 MG, QW
     Route: 042
     Dates: start: 20100720, end: 20100810
  7. AMBIEN [Concomitant]
     Indication: INSOMNIA
     Dosage: 10 MG, PRN
  8. ATIVAN [Concomitant]
     Dosage: 1 MG, TID AS NEEDED
     Route: 048
  9. NALOXONE W/PENTAZOCINE [Concomitant]
     Dosage: 0.5 MG/50 MG, Q3-4H PRN
     Route: 048
  10. SOLIRIS [Suspect]
     Dosage: 900 MG, UNK
     Dates: start: 20110118
  11. MECLIZINE HYDROCHLORIDE [Concomitant]
     Dosage: 25 MG, Q8HRS AS NEEDED
     Route: 048
  12. PROCHLORPERAZINE MALEATE [Concomitant]
     Dosage: 10 MG, TID AS NEEDED
     Route: 048
  13. ORTHO EVRA [Concomitant]
     Dosage: 150-20/24H
  14. SOLIRIS [Suspect]
     Dosage: 600 MG, QW
     Route: 042
     Dates: start: 20101123, end: 20110111
  15. COUMADIN [Concomitant]
     Dosage: UNK
     Dates: end: 20101214

REACTIONS (8)
  - ALOPECIA [None]
  - DEPRESSION [None]
  - TRANSFUSION REACTION [None]
  - HAEMOLYSIS [None]
  - PAIN IN EXTREMITY [None]
  - MUSCULAR WEAKNESS [None]
  - PRESYNCOPE [None]
  - NAUSEA [None]
